FAERS Safety Report 23628116 (Version 1)
Quarter: 2024Q1

REPORT INFORMATION
  Report Type: Spontaneous
  Country: DE (occurrence: DE)
  Receive Date: 20240313
  Receipt Date: 20240313
  Transmission Date: 20240409
  Serious: Yes (Life-Threatening, Hospitalization, Other)
  Sender: FDA-Public Use
  Company Number: DE-SAMSUNG BIOEPIS-SB-2024-07390

PATIENT
  Age: 60 Year
  Sex: Male
  Weight: 64 kg

DRUGS (8)
  1. ONTRUZANT [Suspect]
     Active Substance: TRASTUZUMAB-DTTB
     Indication: Oesophageal adenocarcinoma
     Dosage: D1
     Route: 042
     Dates: start: 20230425
  2. ONTRUZANT [Suspect]
     Active Substance: TRASTUZUMAB-DTTB
     Dosage: D22/D43 PRE-AND POST/OP
     Route: 042
  3. ONTRUZANT [Suspect]
     Active Substance: TRASTUZUMAB-DTTB
     Dosage: AFTERWARDS 6MG/KG IV, D1 Q3W
     Route: 042
     Dates: end: 20230607
  4. PEMBROLIZUMAB [Suspect]
     Active Substance: PEMBROLIZUMAB
     Indication: Oesophageal adenocarcinoma
     Dosage: 200MG FLAT DOSE IV, D1/D22/D43 PRE AND POST OP AFTERWARDS D1, Q8W
     Route: 042
     Dates: start: 20230425, end: 20230607
  5. OXALIPLATIN [Suspect]
     Active Substance: OXALIPLATIN
     Indication: Product used for unknown indication
     Dosage: 95MG/M, IV, D1/D15/D29 AND D43 PRE AND POST OP
     Route: 042
     Dates: start: 20230425, end: 20230607
  6. LEUCOVORIN [Suspect]
     Active Substance: LEUCOVORIN\LEUCOVORIN CALCIUM
     Indication: Product used for unknown indication
     Dosage: 200 MG/M SQUARE; IV, D1/D15/D29 AND D43 PRE AND POST OP
     Route: 042
     Dates: start: 20230425, end: 20230607
  7. FLUOROURACIL [Suspect]
     Active Substance: FLUOROURACIL
     Indication: Product used for unknown indication
     Dosage: 2600 MG/M SQUARE; IV, D1/D15/D29 AND D43 PRE AND POST OP
     Route: 042
     Dates: start: 20230425, end: 20230607
  8. DOCETAXEL [Suspect]
     Active Substance: DOCETAXEL\DOCETAXEL ANHYDROUS
     Indication: Product used for unknown indication
     Dosage: 50 MG/M SQUARE; IV, D1/D15/D29/ AND D43 PRE AND POST OP
     Route: 042
     Dates: start: 20230425, end: 20230607

REACTIONS (6)
  - Gastrointestinal anastomotic leak [Recovering/Resolving]
  - Tracheal injury [Recovering/Resolving]
  - Tracheo-oesophageal fistula [Recovering/Resolving]
  - Infectious pleural effusion [Recovering/Resolving]
  - Lymphatic fistula [Recovering/Resolving]
  - Vascular insufficiency [Recovering/Resolving]

NARRATIVE: CASE EVENT DATE: 20230728
